APPROVED DRUG PRODUCT: MOUNJARO
Active Ingredient: TIRZEPATIDE
Strength: 5MG/0.5ML (5MG/0.5ML)
Dosage Form/Route: SOLUTION;SUBCUTANEOUS
Application: N215866 | Product #008
Applicant: ELI LILLY AND CO
Approved: Jul 28, 2023 | RLD: Yes | RS: Yes | Type: RX

PATENTS:
Patent 12295987 | Expires: Dec 30, 2041
Patent 12295987 | Expires: Dec 30, 2041
Patent 9474780 | Expires: Jan 5, 2036
Patent 12453755 | Expires: Jun 14, 2039
Patent 12453755 | Expires: Jun 14, 2039
Patent 12453755 | Expires: Jun 14, 2039
Patent 12453755 | Expires: Jun 14, 2039
Patent 12453755 | Expires: Jun 14, 2039
Patent 12453755 | Expires: Jun 14, 2039
Patent 12453755 | Expires: Jun 14, 2039
Patent 12453755 | Expires: Jun 14, 2039
Patent 12453755 | Expires: Jun 14, 2039
Patent 12453755 | Expires: Jun 14, 2039
Patent 12453755 | Expires: Jun 14, 2039
Patent 12453755 | Expires: Jun 14, 2039
Patent 12343382 | Expires: Jul 22, 2039
Patent 12343382 | Expires: Jul 22, 2039
Patent 12343382 | Expires: Jul 22, 2039
Patent 12343382 | Expires: Jul 22, 2039
Patent 12343382 | Expires: Jul 22, 2039
Patent 12343382 | Expires: Jul 22, 2039
Patent 11357820 | Expires: Jun 14, 2039
Patent 12453756 | Expires: Jun 14, 2039

EXCLUSIVITY:
Code: NCE | Date: May 13, 2027